FAERS Safety Report 16745859 (Version 3)
Quarter: 2019Q4

REPORT INFORMATION
  Report Type: Spontaneous
  Country: US (occurrence: US)
  Receive Date: 20190827
  Receipt Date: 20191004
  Transmission Date: 20200122
  Serious: Yes (Death)
  Sender: FDA-Public Use
  Company Number: US-ORPHAN EUROPE-2073710

PATIENT
  Age: 24 Month
  Sex: Male

DRUGS (1)
  1. CARBAGLU [Suspect]
     Active Substance: CARGLUMIC ACID
     Indication: MITOCHONDRIAL DNA DEPLETION
     Dates: start: 20180801, end: 20190708

REACTIONS (3)
  - Multiple organ dysfunction syndrome [Fatal]
  - Shock [Fatal]
  - Off label use [None]

NARRATIVE: CASE EVENT DATE: 20180801
